FAERS Safety Report 25521375 (Version 3)
Quarter: 2025Q4

REPORT INFORMATION
  Report Type: Other
  Country: US (occurrence: US)
  Receive Date: 20250705
  Receipt Date: 20251124
  Transmission Date: 20260117
  Serious: No
  Sender: TRAVERE THERAPEUTICS
  Company Number: US-TRAVERE-2025TVT00939

PATIENT
  Age: 43 Year
  Sex: Female

DRUGS (2)
  1. FILSPARI [Suspect]
     Active Substance: SPARSENTAN
     Indication: IgA nephropathy
     Route: 048
     Dates: start: 20250502
  2. VITAMINS [Concomitant]
     Active Substance: VITAMINS

REACTIONS (3)
  - Diplopia [Recovered/Resolved]
  - Blood pressure increased [Unknown]
  - Product administration error [Unknown]

NARRATIVE: CASE EVENT DATE: 20251111
